FAERS Safety Report 5641957-0 (Version None)
Quarter: 2008Q1

REPORT INFORMATION
  Report Type: 
  Country: None (occurrence: None)
  Receive Date: 20080225
  Receipt Date: 20080208
  Transmission Date: 20080703
  Serious: Yes (Other)
  Sender: FDA-Public Use
  Company Number: 2008EU000171

PATIENT
  Age: 57 Year
  Sex: Female
  Weight: 60 kg

DRUGS (1)
  1. PROTOPIC [Suspect]
     Indication: ORAL LICHEN PLANUS
     Dosage: 0.1%, UID/QD, OTHER
     Route: 050
     Dates: start: 20080101, end: 20080101

REACTIONS (5)
  - INCORRECT ROUTE OF DRUG ADMINISTRATION [None]
  - INFLAMMATION [None]
  - OEDEMA MOUTH [None]
  - ORAL PAIN [None]
  - STOMATITIS [None]
